FAERS Safety Report 10993931 (Version 2)
Quarter: 2015Q2

REPORT INFORMATION
  Report Type: Report from Study
  Country: JP (occurrence: JP)
  Receive Date: 20150407
  Receipt Date: 20150610
  Transmission Date: 20150821
  Serious: Yes (Other)
  Sender: FDA-Public Use
  Company Number: JP-JNJFOC-20150402111

PATIENT
  Age: 67 Year
  Sex: Male
  Weight: 92 kg

DRUGS (10)
  1. PEGINTRON [Suspect]
     Active Substance: PEGINTERFERON ALFA-2B
     Indication: CHRONIC HEPATITIS C
     Route: 058
     Dates: start: 20141124, end: 20150105
  2. RIBAVIRIN. [Suspect]
     Active Substance: RIBAVIRIN
     Indication: CHRONIC HEPATITIS C
     Route: 048
     Dates: start: 20141231, end: 20150119
  3. PEGINTRON [Suspect]
     Active Substance: PEGINTERFERON ALFA-2B
     Indication: CHRONIC HEPATITIS C
     Route: 058
     Dates: start: 20141124, end: 20150105
  4. PEGINTRON [Suspect]
     Active Substance: PEGINTERFERON ALFA-2B
     Indication: CHRONIC HEPATITIS C
     Route: 058
     Dates: start: 20150114, end: 20150114
  5. PEGINTRON [Suspect]
     Active Substance: PEGINTERFERON ALFA-2B
     Indication: CHRONIC HEPATITIS C
     Route: 058
     Dates: start: 20141117, end: 20141117
  6. SOVRIAD [Suspect]
     Active Substance: SIMEPREVIR
     Indication: CHRONIC HEPATITIS C
     Route: 048
     Dates: start: 20141117, end: 20150202
  7. PEGINTRON [Suspect]
     Active Substance: PEGINTERFERON ALFA-2B
     Indication: CHRONIC HEPATITIS C
     Route: 058
     Dates: start: 20150114, end: 20150114
  8. RIBAVIRIN. [Suspect]
     Active Substance: RIBAVIRIN
     Indication: CHRONIC HEPATITIS C
     Route: 048
     Dates: start: 20141117, end: 20141230
  9. ALESION [Suspect]
     Active Substance: EPINASTINE HYDROCHLORIDE
     Indication: PRURITUS
     Route: 048
     Dates: start: 20150119, end: 20150126
  10. PEGINTRON [Suspect]
     Active Substance: PEGINTERFERON ALFA-2B
     Indication: CHRONIC HEPATITIS C
     Route: 058
     Dates: start: 20141117, end: 20141117

REACTIONS (13)
  - Malaise [Recovered/Resolved]
  - Headache [Recovered/Resolved]
  - Neutrophil count decreased [Recovered/Resolved]
  - Oedema peripheral [Recovered/Resolved]
  - White blood cell count decreased [Recovered/Resolved]
  - Haemoglobin decreased [Recovered/Resolved]
  - Blood bilirubin increased [Recovered/Resolved]
  - Dyspnoea [Recovered/Resolved]
  - Arthralgia [Recovered/Resolved]
  - Decreased appetite [Recovered/Resolved]
  - Platelet count decreased [Recovered/Resolved]
  - Pruritus [Recovered/Resolved]
  - Pyrexia [Recovered/Resolved]

NARRATIVE: CASE EVENT DATE: 20141117
